FAERS Safety Report 15280157 (Version 1)
Quarter: 2018Q4

REPORT INFORMATION
  Report Type: Spontaneous
  Country: US (occurrence: US)
  Receive Date: 20180815
  Receipt Date: 20180815
  Transmission Date: 20190204
  Serious: No
  Sender: FDA-Public Use
  Company Number: US-SA-2018SA222153

PATIENT
  Sex: Male

DRUGS (1)
  1. GOLD BOND ULTIMATE DAILY MOISTURIZING CREAM [Suspect]
     Active Substance: DIMETHICONE\PETROLATUM

REACTIONS (1)
  - Drug ineffective [Unknown]
